FAERS Safety Report 11512308 (Version 1)
Quarter: 2015Q3

REPORT INFORMATION
  Report Type: Spontaneous
  Country: FR (occurrence: FR)
  Receive Date: 20150916
  Receipt Date: 20150916
  Transmission Date: 20151125
  Serious: Yes (Hospitalization, Other)
  Sender: FDA-Public Use
  Company Number: FR-BRISTOL-MYERS SQUIBB COMPANY-BMS-2015-061385

PATIENT
  Age: 65 Year
  Sex: Male

DRUGS (2)
  1. LOVENOX [Suspect]
     Active Substance: ENOXAPARIN SODIUM
     Indication: PRODUCT USED FOR UNKNOWN INDICATION
     Dosage: 0.7 ML, BID
     Route: 065
     Dates: start: 20130306
  2. COUMADINE [Suspect]
     Active Substance: WARFARIN SODIUM
     Indication: PRODUCT USED FOR UNKNOWN INDICATION
     Dosage: 2 MG, QD
     Route: 048

REACTIONS (5)
  - Rectal haemorrhage [Recovered/Resolved]
  - Polypectomy [Recovered/Resolved]
  - Large intestine polyp [Recovered/Resolved]
  - Normochromic normocytic anaemia [Recovered/Resolved]
  - Transfusion [Recovered/Resolved]

NARRATIVE: CASE EVENT DATE: 20130306
